FAERS Safety Report 16995135 (Version 1)
Quarter: 2019Q4

REPORT INFORMATION
  Report Type: Report from Study
  Country: BR (occurrence: BR)
  Receive Date: 20191105
  Receipt Date: 20191105
  Transmission Date: 20200122
  Serious: Yes (Other)
  Sender: FDA-Public Use
  Company Number: NVSC2019BR019719

PATIENT
  Age: 58 Year
  Sex: Female

DRUGS (1)
  1. KISQALI [Suspect]
     Active Substance: RIBOCICLIB
     Indication: PRODUCT USED FOR UNKNOWN INDICATION
     Dosage: UNK
     Route: 065
     Dates: start: 20190801, end: 20190822

REACTIONS (15)
  - Nausea [Recovered/Resolved]
  - Malaise [Recovered/Resolved]
  - General physical health deterioration [Recovered/Resolved]
  - Feeling cold [Recovered/Resolved]
  - Abdominal pain [Recovered/Resolved]
  - Pain [Recovered/Resolved]
  - Erythema [Recovered/Resolved]
  - Aphonia [Recovered/Resolved]
  - Decreased appetite [Unknown]
  - Body temperature decreased [Recovered/Resolved]
  - Asthenia [Recovered/Resolved]
  - Decreased activity [Recovered/Resolved]
  - Gait disturbance [Recovered/Resolved]
  - Thrombophlebitis superficial [Recovered/Resolved]
  - Abdominal pain upper [Recovered/Resolved]

NARRATIVE: CASE EVENT DATE: 20190808
